FAERS Safety Report 11640139 (Version 1)
Quarter: 2015Q4

REPORT INFORMATION
  Report Type: Spontaneous
  Country: SE (occurrence: SE)
  Receive Date: 20151019
  Receipt Date: 20151019
  Transmission Date: 20160304
  Serious: Yes (Other)
  Sender: FDA-Public Use
  Company Number: SE-TEVA-602131ISR

PATIENT
  Age: 71 Year
  Sex: Female

DRUGS (1)
  1. GABAPENTIN. [Suspect]
     Active Substance: GABAPENTIN

REACTIONS (3)
  - Nausea [Recovered/Resolved]
  - Drug interaction [Recovered/Resolved]
  - Arrhythmia [Recovered/Resolved]
